FAERS Safety Report 11141023 (Version 2)
Quarter: 2015Q2

REPORT INFORMATION
  Report Type: Spontaneous
  Country: IE (occurrence: IE)
  Receive Date: 20150527
  Receipt Date: 20150529
  Transmission Date: 20150821
  Serious: Yes (Other)
  Sender: FDA-Public Use
  Company Number: IE-GLAXOSMITHKLINE-IE2015GSK061165

PATIENT
  Age: 83 Year
  Sex: Female

DRUGS (2)
  1. ZINNAT [Suspect]
     Active Substance: CEFUROXIME AXETIL
     Indication: KIDNEY INFECTION
     Dosage: UNK
  2. BLOOD PRESSURE MEDICATION [Concomitant]
     Active Substance: UNSPECIFIED INGREDIENT
     Indication: HYPERTENSION

REACTIONS (4)
  - Foreign body [Unknown]
  - Abdominal distension [Unknown]
  - Choking [Unknown]
  - Dyspnoea [Unknown]
